FAERS Safety Report 4985685-3 (Version None)
Quarter: 2006Q2

REPORT INFORMATION
  Report Type: 
  Country: None (occurrence: None)
  Receive Date: 20060428
  Receipt Date: 20060203
  Transmission Date: 20061013
  Serious: Yes (Other)
  Sender: FDA-Public Use
  Company Number: US-GLAXOSMITHKLINE-A0592463A

PATIENT
  Age: 18 Month
  Sex: Female

DRUGS (1)
  1. ZOFRAN [Suspect]
     Indication: VOMITING
     Route: 065

REACTIONS (1)
  - CONVULSION [None]
